FAERS Safety Report 8280187-3 (Version None)
Quarter: 2012Q2

REPORT INFORMATION
  Report Type: 
  Country: None (occurrence: None)
  Receive Date: 20120412
  Receipt Date: 20111005
  Transmission Date: 20120825
  Serious: No
  Sender: FDA-Public Use
  Company Number: US-ASTRAZENECA-2011SE60078

PATIENT
  Age: 61 Year
  Sex: Female

DRUGS (4)
  1. REVACID [Concomitant]
  2. NEXIUM [Suspect]
     Route: 048
  3. PROTONIX [Concomitant]
  4. OMEPRAZOLE [Suspect]
     Route: 048

REACTIONS (3)
  - PAIN [None]
  - DRUG DOSE OMISSION [None]
  - DRUG INEFFECTIVE [None]
